FAERS Safety Report 23277306 (Version 5)
Quarter: 2024Q1

REPORT INFORMATION
  Report Type: Spontaneous
  Country: US (occurrence: US)
  Receive Date: 20231208
  Receipt Date: 20240321
  Transmission Date: 20240409
  Serious: Yes (Hospitalization)
  Sender: FDA-Public Use
  Company Number: US-PFIZER INC-202300419066

PATIENT
  Age: 78 Year
  Sex: Female
  Weight: 104.31 kg

DRUGS (11)
  1. PAXLOVID [Suspect]
     Active Substance: NIRMATRELVIR\RITONAVIR
     Indication: COVID-19 treatment
     Dosage: [NIRMATRELVIR 300 MG]/[RITONAVIR 100 MG]; 2X/DAY
     Dates: start: 20231128, end: 20231128
  2. CELEBREX [Concomitant]
     Active Substance: CELECOXIB
     Dosage: 200 MG, DAILY(BEEN ON 200 MG QD FOR SEVERAL YEARS)
  3. CELECOXIB [Concomitant]
     Active Substance: CELECOXIB
     Dosage: TAKE 1 CAPSULE QD
  4. GABAPENTIN [Concomitant]
     Active Substance: GABAPENTIN
     Dosage: TAKE 1 TABLET BID
  5. METAXALONE [Concomitant]
     Active Substance: METAXALONE
     Indication: Muscle spasms
     Dosage: 800 MG TAKE 1 TABLET TID
  6. METFORMIN [Concomitant]
     Active Substance: METFORMIN HYDROCHLORIDE
     Dosage: TAKE 1 TABLET TID
  7. METOPROLOL TARTRATE [Concomitant]
     Active Substance: METOPROLOL TARTRATE
     Dosage: TAKE 1 TABLET BID
  8. OMEPRAZOLE [Concomitant]
     Active Substance: OMEPRAZOLE
     Dosage: TAKE 1 TABLET QD
  9. TEMAZEPAM [Concomitant]
     Active Substance: TEMAZEPAM
     Dosage: 30 MG TAKE 1 CAPSULE HS(AT BED TIME)
  10. VALSARTAN [HYDROCHLOROTHIAZIDE;VALSARTAN] [Concomitant]
     Dosage: TAKE 1 TABLET QD
  11. OXYCODONE [Concomitant]
     Active Substance: OXYCODONE\OXYCODONE HYDROCHLORIDE
     Indication: Pain
     Dosage: 10MG/325MG TAKE 1 TABLET TID PRN

REACTIONS (12)
  - Dehydration [Unknown]
  - Asthenia [Unknown]
  - Abdominal pain [Recovered/Resolved]
  - Vomiting [Recovered/Resolved]
  - Abdominal pain upper [Recovered/Resolved]
  - Drug intolerance [Recovered/Resolved]
  - Nausea [Unknown]
  - Electrolyte depletion [Unknown]
  - Blood sodium decreased [Unknown]
  - Blood chloride decreased [Unknown]
  - Pain [Unknown]
  - Cardiac murmur [Unknown]

NARRATIVE: CASE EVENT DATE: 20231101
